FAERS Safety Report 26109706 (Version 1)
Quarter: 2025Q4

REPORT INFORMATION
  Report Type: Spontaneous
  Country: US (occurrence: None)
  Receive Date: 20251126
  Receipt Date: 20251126
  Transmission Date: 20260117
  Serious: Yes (Hospitalization)
  Sender: FDA-CTU
  Company Number: None

PATIENT
  Age: 63 Year
  Sex: Female

DRUGS (2)
  1. EPOPROSTENOL [Suspect]
     Active Substance: EPOPROSTENOL
     Indication: Pulmonary arterial hypertension
     Dosage: 1.5 MG CONTINUOUSLY INTRAVENOUS ?
     Route: 042
  2. STERILE WATER SDV (50ML) [Concomitant]

REACTIONS (2)
  - Hypervolaemia [None]
  - Rash macular [None]

NARRATIVE: CASE EVENT DATE: 20251117
